FAERS Safety Report 19213737 (Version 1)
Quarter: 2021Q2

REPORT INFORMATION
  Report Type: Spontaneous
  Country: US (occurrence: US)
  Receive Date: 20210505
  Receipt Date: 20210505
  Transmission Date: 20210717
  Serious: Yes (Other)
  Sender: FDA-Public Use
  Company Number: US-ASTRAZENECA-2021A364479

PATIENT
  Sex: Female

DRUGS (2)
  1. METAMUCIL [Concomitant]
     Active Substance: PLANTAGO SEED
     Indication: CONSTIPATION
  2. FASENRA [Suspect]
     Active Substance: BENRALIZUMAB
     Indication: EOSINOPHIL COUNT
     Dosage: 30.0MG UNKNOWN
     Route: 058

REACTIONS (6)
  - Dysphagia [Unknown]
  - Constipation [Unknown]
  - Dyspnoea [Unknown]
  - Swollen tongue [Unknown]
  - Aphasia [Not Recovered/Not Resolved]
  - Dry mouth [Unknown]
